FAERS Safety Report 6198584-9 (Version None)
Quarter: 2009Q2

REPORT INFORMATION
  Report Type: 
  Country: None (occurrence: None)
  Receive Date: 20090521
  Receipt Date: 20090512
  Transmission Date: 20091009
  Serious: Yes (Hospitalization)
  Sender: FDA-Public Use
  Company Number: ES-ROCHE-630380

PATIENT
  Sex: Female
  Weight: 63 kg

DRUGS (9)
  1. METHOXY POLYETHYLENE GLYCOL-EPOETIN BETA [Suspect]
     Dosage: FORMULATION: INJECTION (AS PER PROTOCOL), DATE OF LAST DOSE PRIOR TO SAE: 11 MARCH 2009
     Route: 058
     Dates: start: 20081215
  2. CARDYL [Concomitant]
  3. PROGRAF [Concomitant]
  4. CELLCEPT [Concomitant]
  5. PREDNISONE [Concomitant]
  6. NORVASC [Concomitant]
  7. VALSARTAN [Concomitant]
  8. FERO-GRADUMET [Concomitant]
     Dosage: DRUG NAME: FEROGRADUMET
  9. COROPRES [Concomitant]

REACTIONS (1)
  - PYELONEPHRITIS [None]
